FAERS Safety Report 18456794 (Version 1)
Quarter: 2020Q4

REPORT INFORMATION
  Report Type: Spontaneous
  Country: US (occurrence: US)
  Receive Date: 20201103
  Receipt Date: 20201103
  Transmission Date: 20210114
  Serious: No
  Sender: FDA-Public Use
  Company Number: US-TEVA-2020-US-1844398

PATIENT
  Age: 40 Year
  Sex: Female

DRUGS (1)
  1. FLUOXETINE [Suspect]
     Active Substance: FLUOXETINE HYDROCHLORIDE
     Dosage: USING PRODUCT FOR APPROXIMATELY 10 YEARS
     Route: 065

REACTIONS (5)
  - Fatigue [Unknown]
  - Nervousness [Unknown]
  - Drug hypersensitivity [Unknown]
  - Product measured potency issue [Unknown]
  - Loss of personal independence in daily activities [Unknown]

NARRATIVE: CASE EVENT DATE: 20201024
